FAERS Safety Report 8163586-X (Version None)
Quarter: 2012Q1

REPORT INFORMATION
  Report Type: 
  Country: None (occurrence: None)
  Receive Date: 20120224
  Receipt Date: 20120223
  Transmission Date: 20120608
  Serious: No
  Sender: FDA-Public Use
  Company Number: US-B.I. PHARMACEUTICALS,INC./RIDGEFIELD-2012-BP-01859BP

PATIENT
  Sex: Female
  Weight: 63.5 kg

DRUGS (5)
  1. ZETIA [Concomitant]
  2. CODVE [Concomitant]
  3. AVALIDE [Concomitant]
  4. TRADJENTA [Suspect]
     Indication: TYPE 2 DIABETES MELLITUS
     Dosage: 5 MG
     Route: 048
     Dates: start: 20111221
  5. PLAVIX [Concomitant]

REACTIONS (1)
  - HEADACHE [None]
